FAERS Safety Report 17679656 (Version 3)
Quarter: 2020Q3

REPORT INFORMATION
  Report Type: Spontaneous
  Country: US (occurrence: US)
  Receive Date: 20200417
  Receipt Date: 20200818
  Transmission Date: 20201102
  Serious: Yes (Disabling, Other)
  Sender: FDA-Public Use
  Company Number: US-REGENERON PHARMACEUTICALS, INC.-2020-30005

PATIENT

DRUGS (2)
  1. EYLEA [Suspect]
     Active Substance: AFLIBERCEPT
     Dosage: PLANNED DOSE 0.5 ML, Q MONTH
     Route: 031
     Dates: start: 20200304, end: 20200304
  2. EYLEA [Suspect]
     Active Substance: AFLIBERCEPT
     Indication: NEOVASCULAR AGE-RELATED MACULAR DEGENERATION
     Dosage: PLANNED DOSE 0.5 ML,  Q MONTH
     Route: 031

REACTIONS (3)
  - Wrong technique in product usage process [Unknown]
  - Blindness transient [Recovered/Resolved]
  - Blindness unilateral [Unknown]

NARRATIVE: CASE EVENT DATE: 20200304
